FAERS Safety Report 5308786-9 (Version None)
Quarter: 2007Q2

REPORT INFORMATION
  Report Type: 
  Country: None (occurrence: None)
  Receive Date: 20070426
  Receipt Date: 20070411
  Transmission Date: 20071010
  Serious: Yes (Hospitalization, Other)
  Sender: FDA-Public Use
  Company Number: US-SHR-US-2007-005242

PATIENT
  Age: 60 Year
  Sex: Female
  Weight: 71.655 kg

DRUGS (9)
  1. BETASERON [Suspect]
     Indication: SECONDARY PROGRESSIVE MULTIPLE SCLEROSIS
     Dosage: 8 MIU, EVERY 2D
     Route: 058
     Dates: start: 20000930
  2. ASACOL [Concomitant]
     Indication: COLITIS
     Dosage: 800 MG, 3X/DAY
     Route: 048
  3. LEXAPRO [Concomitant]
     Indication: DEPRESSION
     Dosage: 10 MG, 2X/DAY
     Route: 048
  4. ARICEPT [Concomitant]
     Dosage: 10 MG, BED T.
     Route: 048
  5. AROMASIN [Concomitant]
     Dosage: 25 MG, 1 DOSE
     Route: 048
  6. SANCTURA [Concomitant]
     Dosage: 1 TAB(S), 1X/DAY
     Route: 048
  7. WARFARIN [Concomitant]
     Indication: ANTICOAGULANT THERAPY
     Dosage: 5 MG, 1 DOSE
     Route: 048
  8. IRON [Concomitant]
     Dosage: 18 MG, 1 DOSE
     Route: 048
  9. OSCAL [Concomitant]
     Dosage: 2 TAB(S), UNK
     Route: 048

REACTIONS (4)
  - BREAST CANCER FEMALE [None]
  - COLONOSCOPY [None]
  - FATIGUE [None]
  - MULTIPLE SCLEROSIS [None]
